FAERS Safety Report 19480107 (Version 1)
Quarter: 2021Q2

REPORT INFORMATION
  Report Type: Spontaneous
  Country: US (occurrence: US)
  Receive Date: 20210630
  Receipt Date: 20210630
  Transmission Date: 20210717
  Serious: No
  Sender: FDA-Public Use
  Company Number: US-FOUNDATIONCONSUMERHC-2021-US-000721

PATIENT
  Age: 20 Year
  Sex: Female
  Weight: 72.58 kg

DRUGS (2)
  1. MIDOL [Suspect]
     Active Substance: IBUPROFEN
     Dosage: 1 TABLET
     Route: 048
     Dates: start: 20210104, end: 20210104
  2. PLAN B ONE?STEP [Suspect]
     Active Substance: LEVONORGESTREL
     Indication: POST COITAL CONTRACEPTION
     Dosage: 1.5 MG X 2 DOSES
     Route: 048
     Dates: start: 2020, end: 20210104

REACTIONS (2)
  - Dysmenorrhoea [Recovered/Resolved]
  - Heavy menstrual bleeding [Not Recovered/Not Resolved]

NARRATIVE: CASE EVENT DATE: 2020
